FAERS Safety Report 15196561 (Version 4)
Quarter: 2018Q4

REPORT INFORMATION
  Report Type: Spontaneous
  Country: GR (occurrence: GR)
  Receive Date: 20180725
  Receipt Date: 20181004
  Transmission Date: 20190204
  Serious: Yes (Hospitalization, Other)
  Sender: FDA-Public Use
  Company Number: PHHY2018GR054104

PATIENT
  Age: 62 Year
  Sex: Female

DRUGS (7)
  1. INDAPAMIDE. [Suspect]
     Active Substance: INDAPAMIDE
     Indication: PRODUCT USED FOR UNKNOWN INDICATION
     Route: 065
  2. CARVEDILOL. [Suspect]
     Active Substance: CARVEDILOL
     Indication: PRODUCT USED FOR UNKNOWN INDICATION
     Route: 065
  3. ACENOCOUMAROL [Suspect]
     Active Substance: ACENOCOUMAROL
     Indication: PRODUCT USED FOR UNKNOWN INDICATION
     Route: 065
  4. ALLOPURINOL. [Suspect]
     Active Substance: ALLOPURINOL
     Indication: PRODUCT USED FOR UNKNOWN INDICATION
     Route: 065
  5. FUROSEMIDE. [Suspect]
     Active Substance: FUROSEMIDE
     Indication: PRODUCT USED FOR UNKNOWN INDICATION
     Route: 065
  6. LEVOTHYROXINE. [Suspect]
     Active Substance: LEVOTHYROXINE
     Indication: PRODUCT USED FOR UNKNOWN INDICATION
     Route: 065
  7. SPIRONOLACTONE. [Suspect]
     Active Substance: SPIRONOLACTONE
     Indication: PRODUCT USED FOR UNKNOWN INDICATION
     Route: 065

REACTIONS (13)
  - Vessel puncture site haemorrhage [Recovered/Resolved]
  - Contusion [Unknown]
  - Acute kidney injury [Recovering/Resolving]
  - Blood creatinine increased [Recovering/Resolving]
  - Azotaemia [Recovering/Resolving]
  - Gastritis erosive [Unknown]
  - Gastric disorder [Unknown]
  - Platelet dysfunction [Recovered/Resolved]
  - Ecchymosis [Recovered/Resolved]
  - Gingival bleeding [Unknown]
  - Haematemesis [Unknown]
  - Mucocutaneous haemorrhage [Recovered/Resolved]
  - Haematuria [Unknown]
